FAERS Safety Report 4742502-4 (Version None)
Quarter: 2005Q3

REPORT INFORMATION
  Report Type: 
  Country: None (occurrence: None)
  Receive Date: 20050808
  Receipt Date: 20050725
  Transmission Date: 20060218
  Serious: Yes (Other)
  Sender: FDA-Public Use
  Company Number: US-2005-014742

PATIENT
  Age: 61 Year
  Sex: Male

DRUGS (2)
  1. FLUDARA [Suspect]
     Indication: CHRONIC LYMPHOCYTIC LEUKAEMIA STAGE 2
     Dosage: 3 CYCLES,  INTRAVENOUS
     Route: 042
     Dates: start: 19940801, end: 19941001
  2. FLUDARA [Suspect]
     Indication: CHRONIC LYMPHOCYTIC LEUKAEMIA STAGE 2
     Dosage: 3 CYCLES,  INTRAVENOUS
     Route: 042
     Dates: start: 19950101, end: 19951001

REACTIONS (4)
  - BASAL CELL CARCINOMA [None]
  - LYMPHOPENIA [None]
  - RECURRENT CANCER [None]
  - SKIN GRAFT [None]
